FAERS Safety Report 8118192-X (Version None)
Quarter: 2012Q1

REPORT INFORMATION
  Report Type: 
  Country: None (occurrence: None)
  Receive Date: 20120131
  Receipt Date: 20120117
  Transmission Date: 20120608
  Serious: No
  Sender: FDA-Public Use
  Company Number: B0777607A

PATIENT
  Age: 35 Year
  Sex: Female

DRUGS (2)
  1. COMBIVIR [Suspect]
     Indication: HIV INFECTION
  2. NELFINAVIR MESYLATE [Suspect]
     Indication: HIV INFECTION

REACTIONS (3)
  - MATERNAL EXPOSURE DURING PREGNANCY [None]
  - ANAEMIA [None]
  - CAESAREAN SECTION [None]
